FAERS Safety Report 25771143 (Version 8)
Quarter: 2025Q4

REPORT INFORMATION
  Report Type: Report from Study
  Country: US (occurrence: US)
  Receive Date: 20250908
  Receipt Date: 20251222
  Transmission Date: 20260117
  Serious: Yes (Other)
  Sender: ACADIA PHARMACEUTICALS
  Company Number: US-ACADIA PHARMACEUTICALS INC.-ACA-2025-PIM-009854

PATIENT
  Sex: Male

DRUGS (4)
  1. NUPLAZID [Suspect]
     Active Substance: PIMAVANSERIN TARTRATE
     Indication: Parkinson^s disease psychosis
     Dosage: 34 MILLIGRAM, QD
     Route: 048
     Dates: start: 202506, end: 20251001
  2. CARBIDOPA LEVODOPA [Concomitant]
     Active Substance: CARBIDOPA\LEVODOPA
     Dosage: 1 DOSAGE FORM
  3. SELEGILINE [Concomitant]
     Active Substance: SELEGILINE
     Dosage: 1 DOSAGE FORM, BID
  4. LATANOPROST [Concomitant]
     Active Substance: LATANOPROST
     Dosage: 1 DROP, QD

REACTIONS (2)
  - Hallucination, visual [Not Recovered/Not Resolved]
  - Dizziness [Not Recovered/Not Resolved]
